FAERS Safety Report 6262024-1 (Version None)
Quarter: 2009Q3

REPORT INFORMATION
  Report Type: 
  Country: None (occurrence: None)
  Receive Date: 20090707
  Receipt Date: 20090707
  Transmission Date: 20100115
  Serious: Yes (Disabling)
  Sender: FDA-Public Use
  Company Number: None

PATIENT
  Age: 51 Year
  Sex: Female
  Weight: 65.7716 kg

DRUGS (1)
  1. BONIVA [Suspect]
     Indication: OSTEOPOROSIS
     Dosage: ONE TABLET ONCE MONTHLY PO
     Route: 048
     Dates: start: 20090120, end: 20090620

REACTIONS (2)
  - DENTAL PULP DISORDER [None]
  - GINGIVAL DISORDER [None]
